FAERS Safety Report 10557282 (Version 2)
Quarter: 2014Q4

REPORT INFORMATION
  Report Type: Spontaneous
  Country: CN (occurrence: CN)
  Receive Date: 20141031
  Receipt Date: 20141110
  Transmission Date: 20150529
  Serious: Yes (Death, Hospitalization)
  Sender: FDA-Public Use
  Company Number: CN-SA-2014SA146023

PATIENT
  Age: 18 Year
  Sex: Male
  Weight: 75 kg

DRUGS (8)
  1. CYCLOSPORIN A [Suspect]
     Active Substance: CYCLOSPORINE
     Indication: APLASTIC ANAEMIA
     Dosage: 100MG-125 MG
     Route: 065
     Dates: start: 20130415, end: 20130419
  2. ITRACONAZOLE. [Concomitant]
     Active Substance: ITRACONAZOLE
  3. DESMOPRESSIN [Concomitant]
     Active Substance: DESMOPRESSIN
     Indication: GASTROINTESTINAL HAEMORRHAGE
     Route: 048
     Dates: start: 20130413, end: 20130522
  4. THYMOGLOBULIN [Suspect]
     Active Substance: LAPINE T-LYMPHOCYTE IMMUNE GLOBULIN
     Indication: APLASTIC ANAEMIA
     Route: 042
     Dates: start: 20130415, end: 20130419
  5. CEFEPIME [Concomitant]
     Active Substance: CEFEPIME\CEFEPIME HYDROCHLORIDE
     Indication: INFECTION
     Route: 042
     Dates: start: 20130410, end: 20130424
  6. AMPHOTERICIN B. [Concomitant]
     Active Substance: AMPHOTERICIN B
     Indication: LUNG INFECTION
     Route: 042
     Dates: start: 20130411, end: 20130413
  7. TEICOPLANIN [Concomitant]
     Active Substance: TEICOPLANIN
     Indication: INFECTION
     Route: 042
     Dates: start: 20130409, end: 20130424
  8. SULFAMETHOXAZOLE [Concomitant]
     Active Substance: SULFAMETHOXAZOLE
     Indication: INFECTION
     Route: 048
     Dates: start: 20130409, end: 20140424

REACTIONS (7)
  - Death [Fatal]
  - Lung infection [Unknown]
  - Pyrexia [Unknown]
  - Aplastic anaemia [Unknown]
  - Oral disorder [Unknown]
  - Haemoptysis [Unknown]
  - Gastrointestinal haemorrhage [Unknown]

NARRATIVE: CASE EVENT DATE: 201304
